FAERS Safety Report 11200055 (Version 1)
Quarter: 2015Q2

REPORT INFORMATION
  Report Type: Spontaneous
  Country: US (occurrence: None)
  Receive Date: 20150617
  Receipt Date: 20150617
  Transmission Date: 20150821
  Serious: Yes (Other)
  Sender: FDA-Public Use
  Company Number: None

PATIENT
  Age: 57 Year
  Sex: Female
  Weight: 117.94 kg

DRUGS (7)
  1. HYDROCHLOROTHIAZIDE. [Concomitant]
     Active Substance: HYDROCHLOROTHIAZIDE
  2. BENADRYL [Concomitant]
     Active Substance: DIPHENHYDRAMINE HYDROCHLORIDE
  3. ARMOUR THYROID [Suspect]
     Active Substance: THYROID, PORCINE\THYROID, UNSPECIFIED
     Indication: THERAPY CHANGE
     Route: 048
     Dates: start: 20150511, end: 20150611
  4. METROPROLOL [Concomitant]
     Active Substance: METOPROLOL
  5. LISINOPRIL. [Concomitant]
     Active Substance: LISINOPRIL
  6. CELEBREX [Concomitant]
     Active Substance: CELECOXIB
  7. IODINE SUPPLEMENT [Concomitant]

REACTIONS (16)
  - Drug prescribing error [None]
  - Skin lesion [None]
  - Asthenia [None]
  - Rash [None]
  - Chest discomfort [None]
  - Vomiting [None]
  - Pruritus [None]
  - Incorrect dose administered [None]
  - Arthralgia [None]
  - Pyrexia [None]
  - Skin burning sensation [None]
  - Headache [None]
  - Skin ulcer [None]
  - Peripheral swelling [None]
  - Tremor [None]
  - Alopecia [None]

NARRATIVE: CASE EVENT DATE: 20150515
